FAERS Safety Report 19610282 (Version 2)
Quarter: 2023Q1

REPORT INFORMATION
  Report Type: Other
  Country: IN (occurrence: None)
  Receive Date: 20210726
  Receipt Date: 20230215
  Transmission Date: 20230418
  Serious: Yes (Death)
  Sender: FDA-Public Use
  Company Number: IN-ROCHE-2878069

PATIENT
  Age: 27 Year
  Sex: Male

DRUGS (6)
  1. RITUXIMAB [Suspect]
     Active Substance: RITUXIMAB
     Indication: Myasthenia gravis
     Route: 041
  2. AZATHIOPRINE [Concomitant]
     Active Substance: AZATHIOPRINE
  3. METHOTREXATE [Concomitant]
     Active Substance: METHOTREXATE
  4. CYCLOPHOSPHAMIDE [Concomitant]
     Active Substance: CYCLOPHOSPHAMIDE
  5. MYCOPHENOLATE MOFETIL [Concomitant]
     Active Substance: MYCOPHENOLATE MOFETIL
  6. METHYLPREDNISOLONE [Concomitant]
     Active Substance: METHYLPREDNISOLONE

REACTIONS (1)
  - Myasthenia gravis crisis [Fatal]
